FAERS Safety Report 10263747 (Version 4)
Quarter: 2014Q3

REPORT INFORMATION
  Report Type: Spontaneous
  Country: JP (occurrence: JP)
  Receive Date: 20140627
  Receipt Date: 20140804
  Transmission Date: 20150326
  Serious: Yes (Hospitalization)
  Sender: FDA-Public Use
  Company Number: JP-ABBVIE-14P-087-1227267-00

PATIENT
  Age: 69 Year
  Sex: Male
  Weight: 71 kg

DRUGS (1)
  1. HUMIRA [Suspect]
     Active Substance: ADALIMUMAB
     Indication: CROHN^S DISEASE
     Route: 058
     Dates: start: 20120822, end: 20120905

REACTIONS (3)
  - C-reactive protein increased [Recovered/Resolved]
  - Small intestinal stenosis [Recovered/Resolved]
  - Wound infection [Recovering/Resolving]

NARRATIVE: CASE EVENT DATE: 20120906
